FAERS Safety Report 12779205 (Version 1)
Quarter: 2016Q3

REPORT INFORMATION
  Report Type: Spontaneous
  Country: US (occurrence: US)
  Receive Date: 20160921
  Receipt Date: 20160921
  Transmission Date: 20161109
  Serious: Yes (Hospitalization)
  Sender: FDA-Public Use
  Company Number: None

PATIENT
  Age: 59 Year
  Sex: Male
  Weight: 145.3 kg

DRUGS (1)
  1. GABAPENTIN. [Suspect]
     Active Substance: GABAPENTIN
     Route: 048
     Dates: start: 20160126, end: 20160327

REACTIONS (6)
  - Urticaria [None]
  - Dermatitis [None]
  - Pyrexia [None]
  - Rash pruritic [None]
  - Blood glucose increased [None]
  - Swelling [None]

NARRATIVE: CASE EVENT DATE: 20160324
